APPROVED DRUG PRODUCT: TAVNEOS
Active Ingredient: AVACOPAN
Strength: 10MG
Dosage Form/Route: CAPSULE;ORAL
Application: N214487 | Product #001
Applicant: CHEMOCENTRYX INC
Approved: Oct 7, 2021 | RLD: Yes | RS: Yes | Type: RX

PATENTS:
Patent 11603356 | Expires: Nov 27, 2039
Patent 11951214 | Expires: Nov 27, 2039
Patent 8906938 | Expires: Jan 6, 2034
Patent 8445515 | Expires: Feb 3, 2031

EXCLUSIVITY:
Code: NCE | Date: Oct 7, 2026
Code: ODE-377 | Date: Oct 7, 2028